FAERS Safety Report 7374937 (Version 8)
Quarter: 2013Q2

REPORT INFORMATION
  Report Type: Spontaneous
  Country: US (occurrence: US)
  Receive Date: 20100503
  Receipt Date: 20130530
  Transmission Date: 20140414
  Serious: Yes (Life-Threatening, Hospitalization, Other)
  Sender: FDA-Public Use
  Company Number: US-ASTRAZENECA-2009SE26231

PATIENT
  Age: 83 Year
  Sex: Female

DRUGS (2)
  1. NEXIUM [Suspect]
     Indication: GASTROOESOPHAGEAL REFLUX DISEASE
     Route: 048
     Dates: start: 2007
  2. PRILOSEC [Suspect]
     Route: 048

REACTIONS (14)
  - Coma [Unknown]
  - Dehydration [Unknown]
  - Myocardial infarction [Unknown]
  - Cerebrovascular accident [Unknown]
  - Malaise [Unknown]
  - Gastrooesophageal reflux disease [Unknown]
  - Hearing impaired [Unknown]
  - Pharyngeal disorder [Unknown]
  - Feeling abnormal [Unknown]
  - Aphonia [Unknown]
  - Thyroid disorder [Unknown]
  - Abdominal pain upper [Unknown]
  - Intentional drug misuse [Unknown]
  - Intentional drug misuse [Unknown]
